FAERS Safety Report 6433402-2 (Version None)
Quarter: 2009Q4

REPORT INFORMATION
  Report Type: 
  Country: None (occurrence: None)
  Receive Date: 20091109
  Receipt Date: 20070919
  Transmission Date: 20100525
  Serious: Yes (Death, Hospitalization)
  Sender: FDA-Public Use
  Company Number: US-GENENTECH-246388

PATIENT
  Sex: Male
  Weight: 123 kg

DRUGS (9)
  1. BEVACIZUMAB [Suspect]
     Indication: BILE DUCT CANCER
     Dosage: 5 MG/KG, Q2W
     Route: 042
     Dates: start: 20070409
  2. CAPECITABINE [Suspect]
     Indication: BILE DUCT CANCER
     Dosage: 825 MG/M2, BID
     Route: 048
     Dates: start: 20070409
  3. OXALIPLATIN [Suspect]
     Indication: BILE DUCT CANCER
     Dosage: 50 MG/M2, 1/WEEK
     Route: 042
     Dates: start: 20070409
  4. ALLEGRA [Concomitant]
     Indication: DRUG USE FOR UNKNOWN INDICATION
     Dates: start: 20070412
  5. ATIVAN [Concomitant]
     Indication: DRUG USE FOR UNKNOWN INDICATION
     Dates: start: 20070409
  6. WELLBUTRIN [Concomitant]
     Indication: DRUG USE FOR UNKNOWN INDICATION
     Dates: start: 20070507
  7. CHONDROITIN [Concomitant]
     Indication: DRUG USE FOR UNKNOWN INDICATION
  8. MOTRIN [Concomitant]
     Indication: DRUG USE FOR UNKNOWN INDICATION
     Dates: start: 20070613
  9. LOVENOX [Concomitant]
     Indication: DRUG USE FOR UNKNOWN INDICATION
     Dates: start: 20070406

REACTIONS (4)
  - COAGULOPATHY [None]
  - FAILURE TO THRIVE [None]
  - HEPATIC ENCEPHALOPATHY [None]
  - KLEBSIELLA INFECTION [None]
